FAERS Safety Report 16421234 (Version 3)
Quarter: 2019Q3

REPORT INFORMATION
  Report Type: Spontaneous
  Country: PT (occurrence: PT)
  Receive Date: 20190612
  Receipt Date: 20190927
  Transmission Date: 20191004
  Serious: Yes (Other)
  Sender: FDA-Public Use
  Company Number: PT-ASTRAZENECA-2019SE84748

PATIENT
  Age: 54 Year
  Weight: 52.4 kg

DRUGS (1)
  1. BYDUREON [Suspect]
     Active Substance: EXENATIDE
     Indication: DIABETES MELLITUS
     Route: 058
     Dates: start: 20190211, end: 20190527

REACTIONS (1)
  - Lipodystrophy acquired [Unknown]

NARRATIVE: CASE EVENT DATE: 20190211
